FAERS Safety Report 21258819 (Version 1)
Quarter: 2022Q3

REPORT INFORMATION
  Report Type: Spontaneous
  Country: US (occurrence: None)
  Receive Date: 20220825
  Receipt Date: 20220825
  Transmission Date: 20221027
  Serious: Yes (Death)
  Sender: FDA-Public Use
  Company Number: None

PATIENT
  Age: 56 Year
  Sex: Male
  Weight: 151.65 kg

DRUGS (17)
  1. KAYEXALATE [Suspect]
     Active Substance: SODIUM POLYSTYRENE SULFONATE
     Indication: Blood potassium increased
  2. GABAPENTIN [Concomitant]
     Active Substance: GABAPENTIN
  3. HUMULIN NOS [Concomitant]
     Active Substance: INSULIN HUMAN
  4. FUROSEMIDE [Concomitant]
     Active Substance: FUROSEMIDE
  5. ATORVASTATIN [Concomitant]
     Active Substance: ATORVASTATIN
  6. TRAMADOL [Concomitant]
     Active Substance: TRAMADOL
  7. SERTRALINE [Concomitant]
     Active Substance: SERTRALINE HYDROCHLORIDE
  8. MELOXICAM [Concomitant]
     Active Substance: MELOXICAM
  9. CARVEDILOL [Concomitant]
     Active Substance: CARVEDILOL
  10. ROPINIROLE [Concomitant]
     Active Substance: ROPINIROLE
  11. RISPERIDONE [Concomitant]
     Active Substance: RISPERIDONE
  12. LEVOTHYROXINE [Concomitant]
     Active Substance: LEVOTHYROXINE
  13. LISINOPRIL [Concomitant]
     Active Substance: LISINOPRIL
  14. KAYEXALATE [Concomitant]
     Active Substance: SODIUM POLYSTYRENE SULFONATE
  15. over 50+ multi-vitamin [Concomitant]
  16. VITAMIN D3 [Concomitant]
     Active Substance: CHOLECALCIFEROL
  17. MELATONIN [Concomitant]
     Active Substance: MELATONIN

REACTIONS (6)
  - Haematochezia [None]
  - Diarrhoea [None]
  - Malaise [None]
  - Gait inability [None]
  - Dysstasia [None]
  - Treatment noncompliance [None]

NARRATIVE: CASE EVENT DATE: 20220128
